FAERS Safety Report 22655001 (Version 1)
Quarter: 2023Q2

REPORT INFORMATION
  Report Type: Report from Study
  Country: US (occurrence: US)
  Receive Date: 20230629
  Receipt Date: 20230629
  Transmission Date: 20230721
  Serious: No
  Sender: FDA-Public Use
  Company Number: US-ABBVIE-5275977

PATIENT
  Age: 59 Year
  Sex: Female
  Weight: 64 kg

DRUGS (10)
  1. HUMIRA [Suspect]
     Active Substance: ADALIMUMAB
     Indication: Rheumatoid arthritis
     Dosage: START DATE: LATE 2019 OR EARLY 2020
     Route: 058
     Dates: start: 2019
  2. PROGESTERONE [Concomitant]
     Active Substance: PROGESTERONE
     Indication: Hormone therapy
  3. TESTOSTERONE [Concomitant]
     Active Substance: TESTOSTERONE
     Indication: Hormone therapy
  4. VITAMIN D [Concomitant]
     Active Substance: VITAMIN D NOS
     Indication: Vitamin supplementation
  5. ESTRADIOL [Concomitant]
     Active Substance: ESTRADIOL
     Indication: Menopause
  6. FOLIC ACID [Concomitant]
     Active Substance: FOLIC ACID
     Indication: Product used for unknown indication
  7. PROBIOTICS NOS [Concomitant]
     Active Substance: PROBIOTICS NOS
     Indication: Supplementation therapy
  8. CLARITIN [Concomitant]
     Active Substance: LORATADINE
     Indication: Hypersensitivity
  9. PRASTERONE [Concomitant]
     Active Substance: PRASTERONE
     Indication: Hormone therapy
  10. Krill oil tvs [Concomitant]
     Indication: Supplementation therapy

REACTIONS (3)
  - Back pain [Recovered/Resolved]
  - Muscle strain [Recovered/Resolved]
  - Back injury [Recovered/Resolved]

NARRATIVE: CASE EVENT DATE: 20230501
